FAERS Safety Report 10218139 (Version 2)
Quarter: 2014Q2

REPORT INFORMATION
  Report Type: Spontaneous
  Country: US (occurrence: US)
  Receive Date: 20140605
  Receipt Date: 20140624
  Transmission Date: 20141212
  Serious: No
  Sender: FDA-Public Use
  Company Number: US-BIOGENIDEC-2014BI047890

PATIENT
  Age: 48 Year
  Sex: Female

DRUGS (1)
  1. TECFIDERA [Suspect]
     Indication: RELAPSING-REMITTING MULTIPLE SCLEROSIS
     Route: 048
     Dates: start: 2013

REACTIONS (4)
  - Haematuria [Not Recovered/Not Resolved]
  - Renal cyst [Not Recovered/Not Resolved]
  - Bladder disorder [Not Recovered/Not Resolved]
  - Renal impairment [Not Recovered/Not Resolved]
